FAERS Safety Report 15060291 (Version 1)
Quarter: 2018Q2

REPORT INFORMATION
  Report Type: Spontaneous
  Country: US (occurrence: US)
  Receive Date: 20180625
  Receipt Date: 20180625
  Transmission Date: 20180711
  Serious: Yes (Other)
  Sender: FDA-Public Use
  Company Number: PHEH2018US024183

PATIENT
  Sex: Female

DRUGS (1)
  1. KISQALI [Suspect]
     Active Substance: RIBOCICLIB
     Indication: BREAST CANCER FEMALE
     Route: 048

REACTIONS (6)
  - Breast cancer female [Unknown]
  - Malignant neoplasm progression [Unknown]
  - Bone pain [Unknown]
  - Decreased appetite [Unknown]
  - Insomnia [Unknown]
  - Gastrooesophageal reflux disease [Unknown]
